FAERS Safety Report 9380788 (Version 1)
Quarter: 2013Q3

REPORT INFORMATION
  Report Type: Spontaneous
  Country: US (occurrence: US)
  Receive Date: 20130702
  Receipt Date: 20130702
  Transmission Date: 20140515
  Serious: No
  Sender: FDA-Public Use
  Company Number: US-ASTRAZENECA-2013SE41618

PATIENT
  Age: 84 Year
  Sex: Male
  Weight: 63.5 kg

DRUGS (4)
  1. CASODEX [Suspect]
     Indication: PROSTATE CANCER
     Route: 048
  2. CASODEX [Suspect]
     Indication: PROSTATE CANCER
     Route: 048
  3. COUMADIN [Concomitant]
     Indication: HEART RATE IRREGULAR
     Route: 048
  4. LANOXIN [Concomitant]
     Indication: HEART RATE IRREGULAR
     Route: 048

REACTIONS (3)
  - Prostatic specific antigen abnormal [Not Recovered/Not Resolved]
  - Breast tenderness [Not Recovered/Not Resolved]
  - Breast swelling [Not Recovered/Not Resolved]
